FAERS Safety Report 5225425-6 (Version None)
Quarter: 2007Q1

REPORT INFORMATION
  Report Type: 
  Country: None (occurrence: None)
  Receive Date: 20070131
  Receipt Date: 20070120
  Transmission Date: 20070707
  Serious: Yes (Other)
  Sender: FDA-Public Use
  Company Number: US-PFIZER INC-2006139378

PATIENT
  Sex: Female
  Weight: 54 kg

DRUGS (6)
  1. CHANTIX [Suspect]
     Indication: SMOKING CESSATION THERAPY
     Route: 048
  2. OSCAL [Concomitant]
  3. TIOTROPIUM BROMIDE [Concomitant]
  4. LESCOL [Concomitant]
  5. NORVASC [Concomitant]
  6. FEXOFENADINE [Concomitant]

REACTIONS (6)
  - APHONIA [None]
  - CHOKING [None]
  - COUGH [None]
  - NAUSEA [None]
  - RESPIRATORY TRACT INFECTION [None]
  - THROAT TIGHTNESS [None]
